FAERS Safety Report 9416303 (Version 1)
Quarter: 2013Q3

REPORT INFORMATION
  Report Type: Report from Study
  Country: US (occurrence: US)
  Receive Date: 20130724
  Receipt Date: 20130724
  Transmission Date: 20140515
  Serious: Yes (Life-Threatening, Hospitalization)
  Sender: FDA-Public Use
  Company Number: US-BRISTOL-MYERS SQUIBB COMPANY-19017599

PATIENT
  Age: 77 Year
  Sex: Male
  Weight: 97.73 kg

DRUGS (5)
  1. IPILIMUMAB [Suspect]
     Indication: MALIGNANT MELANOMA
     Dosage: TOTAL 293MG;?LAST DOSE: 30APR2012
     Route: 042
     Dates: start: 20120827, end: 20130529
  2. BABY ASPIRIN [Concomitant]
  3. LOMOTIL [Concomitant]
  4. RED YEAST RICE [Concomitant]
  5. IMODIUM ADVANCED [Concomitant]

REACTIONS (9)
  - Fatigue [Recovering/Resolving]
  - Pyrexia [Recovering/Resolving]
  - Abdominal pain [Recovering/Resolving]
  - Diarrhoea [Recovering/Resolving]
  - Syncope [Recovered/Resolved]
  - Weight decreased [Recovering/Resolving]
  - Atrial fibrillation [Recovered/Resolved]
  - Colitis [Unknown]
  - Decreased appetite [Recovering/Resolving]
